FAERS Safety Report 10455640 (Version 1)
Quarter: 2014Q3

REPORT INFORMATION
  Report Type: Spontaneous
  Country: US (occurrence: None)
  Receive Date: 20140915
  Receipt Date: 20140915
  Transmission Date: 20150326
  Serious: Yes (Life-Threatening)
  Sender: FDA-Public Use
  Company Number: None

PATIENT
  Weight: 53 kg

DRUGS (3)
  1. DIPRIVAN [Suspect]
     Active Substance: PROPOFOL
     Indication: SEDATION
     Dosage: 200, OTHER, INTRAVENOUS
     Route: 042
  2. ROBUNIL [Concomitant]
  3. NEOSYNEPHERINE [Concomitant]

REACTIONS (3)
  - Ventricular tachycardia [None]
  - Ventricular fibrillation [None]
  - Bradycardia [None]

NARRATIVE: CASE EVENT DATE: 20140822
